FAERS Safety Report 8785715 (Version 1)
Quarter: 2012Q4

REPORT INFORMATION
  Report Type: 
  Country: FI (occurrence: FI)
  Receive Date: 20120914
  Receipt Date: 20120914
  Transmission Date: 20130627
  Serious: Yes (Other)
  Sender: FDA-Public Use
  Company Number: FI-UCBSA-065308

PATIENT

DRUGS (1)
  1. CIMZIA [Suspect]

REACTIONS (1)
  - Cerebral infarction [Unknown]
